FAERS Safety Report 9627043 (Version 1)
Quarter: 2013Q4

REPORT INFORMATION
  Report Type: Spontaneous
  Country: US (occurrence: US)
  Receive Date: 20131016
  Receipt Date: 20131016
  Transmission Date: 20140711
  Serious: Yes (Other)
  Sender: FDA-Public Use
  Company Number: US-BAXTER-2013BAX040120

PATIENT
  Sex: 0

DRUGS (1)
  1. DEXTROSE\SODIUM CHLORIDE [Suspect]
     Indication: PRODUCT USED FOR UNKNOWN INDICATION
     Route: 042
     Dates: start: 20130627

REACTIONS (2)
  - Hypoglycaemia [Unknown]
  - Device infusion issue [Unknown]
